FAERS Safety Report 25906735 (Version 2)
Quarter: 2025Q4

REPORT INFORMATION
  Report Type: Spontaneous
  Country: GB (occurrence: GB)
  Receive Date: 20251010
  Receipt Date: 20251020
  Transmission Date: 20260117
  Serious: Yes (Disabling, Other)
  Sender: PFIZER
  Company Number: None

PATIENT
  Age: 42 Year
  Sex: Female
  Weight: 86 kg

DRUGS (1)
  1. DOXYCYCLINE HYCLATE [Suspect]
     Active Substance: DOXYCYCLINE HYCLATE
     Indication: Sinusitis
     Dosage: UNK

REACTIONS (7)
  - Product prescribing error [Unknown]
  - Photosensitivity reaction [Recovering/Resolving]
  - Nail bed bleeding [Unknown]
  - Onychomadesis [Unknown]
  - Blister [Unknown]
  - Sunburn [Unknown]
  - Headache [Unknown]

NARRATIVE: CASE EVENT DATE: 20250516
